FAERS Safety Report 5882864-8 (Version None)
Quarter: 2008Q3

REPORT INFORMATION
  Report Type: 
  Country: None (occurrence: None)
  Receive Date: 20080913
  Receipt Date: 20080818
  Transmission Date: 20090109
  Serious: No
  Sender: FDA-Public Use
  Company Number: US-ABBOTT-08P-163-0471712-00

PATIENT
  Sex: Male
  Weight: 154.36 kg

DRUGS (3)
  1. HUMIRA [Suspect]
     Indication: PSORIASIS
     Route: 050
     Dates: start: 20080601, end: 20080801
  2. BLOOD PRESSURE MEDICINE [Concomitant]
     Indication: HYPERTENSION
     Route: 048
     Dates: start: 20050101
  3. FUROSEMIDE [Concomitant]
     Indication: FLUID RETENTION
     Route: 048
     Dates: start: 20050101

REACTIONS (1)
  - FURUNCLE [None]
